FAERS Safety Report 22804445 (Version 7)
Quarter: 2024Q4

REPORT INFORMATION
  Report Type: Spontaneous
  Country: US (occurrence: US)
  Receive Date: 20230809
  Receipt Date: 20241230
  Transmission Date: 20250115
  Serious: Yes (Other)
  Sender: PFIZER
  Company Number: US-PFIZER INC-2021410232

PATIENT
  Age: 80 Year
  Sex: Female
  Weight: 75.737 kg

DRUGS (4)
  1. IBRANCE [Suspect]
     Active Substance: PALBOCICLIB
     Indication: Breast cancer female
     Dosage: 125 MG, CYCLIC (ONE TAB ORAL DAILY 21 DAYS ON 7 DAYS OFF)
     Route: 048
     Dates: start: 201706
  2. IBRANCE [Suspect]
     Active Substance: PALBOCICLIB
     Indication: Metastases to lung
     Dosage: 100 MG, CYCLIC (ONE TAB ORAL DAILY 21 DAYS ON 7 DAYS OFF)
     Route: 048
     Dates: start: 202005
  3. IBRANCE [Suspect]
     Active Substance: PALBOCICLIB
     Dosage: ONE TAB ORALLY DAILY X 21 DAYS THEN 7 DAYS OFF
     Route: 048
  4. LETROZOLE [Concomitant]
     Active Substance: LETROZOLE
     Dosage: UNK
     Dates: start: 201706

REACTIONS (3)
  - Neutropenia [Not Recovered/Not Resolved]
  - Fatigue [Unknown]
  - Neoplasm progression [Unknown]
